FAERS Safety Report 6433936-0 (Version None)
Quarter: 2009Q4

REPORT INFORMATION
  Report Type: 
  Country: None (occurrence: None)
  Receive Date: 20091110
  Receipt Date: 20091102
  Transmission Date: 20100525
  Serious: Yes (Hospitalization)
  Sender: FDA-Public Use
  Company Number: NZ-ASTRAZENECA-2009SE23651

PATIENT
  Age: 11361 Day
  Sex: Male

DRUGS (2)
  1. OMEPRAZOLE [Suspect]
     Route: 048
     Dates: start: 20041015, end: 20041015
  2. BECLOMETHASONE DIPROPIONATE [Suspect]
     Dosage: 100 RG SINGLE ADMINISTRATION
     Route: 055
     Dates: start: 20041015, end: 20041015

REACTIONS (1)
  - OEDEMA MOUTH [None]
